FAERS Safety Report 16446013 (Version 1)
Quarter: 2019Q2

REPORT INFORMATION
  Report Type: Report from Study
  Country: US (occurrence: US)
  Receive Date: 20190618
  Receipt Date: 20190618
  Transmission Date: 20190711
  Serious: Yes (Hospitalization)
  Sender: FDA-Public Use
  Company Number: US-PFIZER INC-2019250403

PATIENT
  Age: 9 Year
  Sex: Male
  Weight: 45 kg

DRUGS (13)
  1. VINCRISTINE SULFATE. [Suspect]
     Active Substance: VINCRISTINE SULFATE
     Indication: ACUTE LYMPHOCYTIC LEUKAEMIA
     Dosage: 2 MG, DAYS 1, 29, 57 OF EACH MAINTENANCE CYCLE
     Route: 042
     Dates: start: 20190320
  2. INCB018424 [Suspect]
     Active Substance: RUXOLITINIB
     Dosage: 55 MG, BID (14 DAYS ON 14 DAYS OFF)
     Route: 048
     Dates: start: 20190517
  3. INCB018424 [Suspect]
     Active Substance: RUXOLITINIB
     Dosage: 55 MG, BID (14 DAYS ON 14 DAYS OFF)
     Route: 048
     Dates: start: 20190515, end: 20190516
  4. MERCAPTOPURINE. [Suspect]
     Active Substance: MERCAPTOPURINE
     Dosage: 75 MG, 1X/DAY
     Route: 048
     Dates: start: 20190417, end: 20190516
  5. MERCAPTOPURINE. [Suspect]
     Active Substance: MERCAPTOPURINE
     Dosage: 75 MG, 1X/DAY
     Route: 048
     Dates: start: 20190517
  6. METHOTREXATE SODIUM. [Suspect]
     Active Substance: METHOTREXATE SODIUM
     Indication: ACUTE LYMPHOCYTIC LEUKAEMIA
     Dosage: 12 MG, DAY 1 OF EACH MAINTENANCE CYCLE
     Route: 037
     Dates: start: 20190320, end: 20190320
  7. METHOTREXATE. [Suspect]
     Active Substance: METHOTREXATE
     Dosage: 20 MG, WEEKLY
     Route: 048
     Dates: start: 20190522
  8. METHOTREXATE. [Suspect]
     Active Substance: METHOTREXATE
     Indication: ACUTE LYMPHOCYTIC LEUKAEMIA
     Dosage: 13.75 MG, WEEKLY
     Route: 048
     Dates: start: 20190320, end: 20190508
  9. INCB018424 [Suspect]
     Active Substance: RUXOLITINIB
     Indication: ACUTE LYMPHOCYTIC LEUKAEMIA
     Dosage: 50 MG, BID (14 DAYS ON, 14 DAYS OFF)
     Route: 048
     Dates: start: 20190320, end: 20190423
  10. PREDNISONE. [Suspect]
     Active Substance: PREDNISONE
     Dosage: 25 MG, BID (DAYS 1-5; 29-33; 57-61 OF EACH MAINTENANCE CYCLE)
     Route: 048
     Dates: start: 20190517
  11. PREDNISONE. [Suspect]
     Active Substance: PREDNISONE
     Indication: ACUTE LYMPHOCYTIC LEUKAEMIA
     Dosage: 25 MG, BID (DAYS 1-5; 29-33; 57-61 OF EACH MAINTENANCE CYCLE)
     Route: 048
     Dates: start: 20190327, end: 20190516
  12. MERCAPTOPURINE. [Suspect]
     Active Substance: MERCAPTOPURINE
     Indication: ACUTE LYMPHOCYTIC LEUKAEMIA
     Dosage: 50 MG, 1X/DAY
     Route: 048
     Dates: start: 20190320, end: 20190416
  13. METHOTREXATE. [Suspect]
     Active Substance: METHOTREXATE
     Dosage: 20 MG, WEEKLY
     Route: 048
     Dates: start: 20190515, end: 20190516

REACTIONS (2)
  - Pyrexia [Recovered/Resolved]
  - Tachycardia [Recovered/Resolved]

NARRATIVE: CASE EVENT DATE: 20190516
